FAERS Safety Report 17053454 (Version 3)
Quarter: 2019Q4

REPORT INFORMATION
  Report Type: Report from Study
  Country: JP (occurrence: JP)
  Receive Date: 20191120
  Receipt Date: 20191210
  Transmission Date: 20200122
  Serious: Yes (Death, Hospitalization)
  Sender: FDA-Public Use
  Company Number: JP-ELI_LILLY_AND_COMPANY-JP201911007933

PATIENT
  Age: 68 Year
  Sex: Male

DRUGS (10)
  1. BAYASPIRIN [Concomitant]
     Active Substance: ASPIRIN
  2. TRAZENTA [Concomitant]
     Active Substance: LINAGLIPTIN
  3. ROSUVASTATIN. [Concomitant]
     Active Substance: ROSUVASTATIN
  4. CARBOCISTEINE [Concomitant]
     Active Substance: CARBOCYSTEINE
  5. TADALAFIL. [Suspect]
     Active Substance: TADALAFIL
     Indication: PRODUCT USED FOR UNKNOWN INDICATION
     Dosage: UNK
     Route: 048
     Dates: start: 20190717
  6. GOREISAN [ALISMA PLANTAGO-AQUATICA VAR. ORIEN [Concomitant]
  7. BELSOMRA [Concomitant]
     Active Substance: SUVOREXANT
  8. BISOPROLOL FUMARATE. [Concomitant]
     Active Substance: BISOPROLOL FUMARATE
  9. RABEPRAZOLE NA [Concomitant]
     Active Substance: RABEPRAZOLE SODIUM
  10. OFEV [Concomitant]
     Active Substance: NINTEDANIB

REACTIONS (1)
  - Pneumonia [Fatal]
